FAERS Safety Report 7095193-4 (Version None)
Quarter: 2010Q4

REPORT INFORMATION
  Report Type: 
  Country: None (occurrence: None)
  Receive Date: 20101103
  Receipt Date: 20101019
  Transmission Date: 20110411
  Serious: Yes (Death)
  Sender: FDA-Public Use
  Company Number: AE 2010-334

PATIENT
  Age: 59 Year
  Sex: Male

DRUGS (7)
  1. FAZACLO ODT [Suspect]
     Dosage: 100 MG DAILY PO
     Route: 048
     Dates: start: 20101015, end: 20101018
  2. ATIVAN [Concomitant]
  3. METHADONE [Concomitant]
  4. SCOPOLAMINE [Concomitant]
  5. LASIX [Concomitant]
  6. DEPAKENE [Concomitant]
  7. SYNTHROID [Concomitant]

REACTIONS (1)
  - DEATH [None]
